FAERS Safety Report 19984360 (Version 1)
Quarter: 2021Q4

REPORT INFORMATION
  Report Type: Report from Study
  Country: FR (occurrence: FR)
  Receive Date: 20211022
  Receipt Date: 20211022
  Transmission Date: 20220303
  Serious: Yes (Life-Threatening, Hospitalization)
  Sender: FDA-Public Use
  Company Number: FR-ROCHE-2896858

PATIENT
  Age: 77 Year
  Sex: Male

DRUGS (6)
  1. BEVACIZUMAB [Suspect]
     Active Substance: BEVACIZUMAB
     Indication: Pancreatic neuroendocrine tumour
     Dosage: CUMULATIVE DOSE OF 800 MG
     Route: 042
     Dates: start: 20210707, end: 20210721
  2. CAPECITABINE [Suspect]
     Active Substance: CAPECITABINE
     Indication: Pancreatic neuroendocrine tumour
     Dosage: CUMULATIVE DOSE OF 42 GRAM
     Route: 048
     Dates: start: 20210707, end: 20210720
  3. TEMOZOLOMIDE [Suspect]
     Active Substance: TEMOZOLOMIDE
     Indication: Product used for unknown indication
     Dosage: CUMULATIVE DOSE OF 1550 MILLIGRAM
     Route: 048
     Dates: start: 20210716, end: 20210720
  4. PANTOPRAZOLE [Concomitant]
     Active Substance: PANTOPRAZOLE
     Indication: Prophylaxis
     Route: 048
     Dates: start: 20210713
  5. AVODART [Concomitant]
     Active Substance: DUTASTERIDE
  6. SILODOSIN [Concomitant]
     Active Substance: SILODOSIN

REACTIONS (3)
  - Thrombocytopenia [Recovered/Resolved]
  - Neutropenia [Recovered/Resolved]
  - Agranulocytosis [Recovered/Resolved]

NARRATIVE: CASE EVENT DATE: 20210803
